FAERS Safety Report 4802214-5 (Version None)
Quarter: 2005Q4

REPORT INFORMATION
  Report Type: 
  Country: None (occurrence: None)
  Receive Date: 20051012
  Receipt Date: 20050929
  Transmission Date: 20060501
  Serious: Yes (Hospitalization)
  Sender: FDA-Public Use
  Company Number: 2005BI015057

PATIENT
  Age: 49 Year
  Sex: Female
  Weight: 63.5036 kg

DRUGS (2)
  1. AVONEX [Suspect]
     Indication: MULTIPLE SCLEROSIS
     Dosage: 30 UG; QW; IM
     Route: 030
     Dates: start: 20040913
  2. IMURAN [Concomitant]

REACTIONS (5)
  - ASTHENIA [None]
  - ESCHERICHIA INFECTION [None]
  - IMMOBILE [None]
  - INFLUENZA LIKE ILLNESS [None]
  - POISONING [None]
